FAERS Safety Report 15401835 (Version 7)
Quarter: 2019Q1

REPORT INFORMATION
  Report Type: Report from Study
  Country: CH (occurrence: CH)
  Receive Date: 20180919
  Receipt Date: 20190325
  Transmission Date: 20190417
  Serious: Yes (Hospitalization, Disabling)
  Sender: FDA-Public Use
  Company Number: CH-AMGEN-CHENI2018127714

PATIENT
  Age: 81 Year
  Sex: Male
  Weight: 73.7 kg

DRUGS (6)
  1. EVOLOCUMAB [Suspect]
     Active Substance: EVOLOCUMAB
     Dosage: 140 MG, Q2WK
     Route: 058
     Dates: start: 20180620, end: 20180912
  2. PREDNISONE. [Concomitant]
     Active Substance: PREDNISONE
     Dosage: 60 MG, QD
  3. METHOTREXATE. [Concomitant]
     Active Substance: METHOTREXATE
     Dosage: UNK
     Dates: start: 201704
  4. EVOLOCUMAB [Suspect]
     Active Substance: EVOLOCUMAB
     Indication: HYPERCHOLESTEROLAEMIA
     Dosage: 140 MG, Q2WK
     Route: 058
     Dates: start: 20160922, end: 20171130
  5. XARELTO [Concomitant]
     Active Substance: RIVAROXABAN
     Dosage: 20 MG, QD
     Route: 048
  6. IMUREK [Concomitant]
     Active Substance: AZATHIOPRINE
     Dosage: 50 MG, QD

REACTIONS (2)
  - Headache [Recovered/Resolved]
  - Necrotising myositis [Not Recovered/Not Resolved]

NARRATIVE: CASE EVENT DATE: 201807
